FAERS Safety Report 8613874-5 (Version None)
Quarter: 2012Q3

REPORT INFORMATION
  Report Type: 
  Country: None (occurrence: None)
  Receive Date: 20120823
  Receipt Date: 20120815
  Transmission Date: 20120928
  Serious: Yes (Hospitalization)
  Sender: FDA-Public Use
  Company Number: CO-AMGEN-COLSP2012041907

PATIENT
  Age: 16 Year
  Sex: Female

DRUGS (1)
  1. ENBREL [Suspect]
     Indication: JUVENILE ARTHRITIS
     Dosage: 50 MG, TWICE PER MONTH (EVERY 15 DAYS)
     Dates: start: 20120626

REACTIONS (3)
  - ORAL HERPES [None]
  - DELIRIUM [None]
  - PYREXIA [None]
